FAERS Safety Report 13724901 (Version 2)
Quarter: 2017Q4

REPORT INFORMATION
  Report Type: Spontaneous
  Country: US (occurrence: US)
  Receive Date: 20170706
  Receipt Date: 20171020
  Transmission Date: 20180320
  Serious: Yes (Other)
  Sender: FDA-Public Use
  Company Number: US-PFIZER INC-2017285548

PATIENT
  Sex: Female

DRUGS (1)
  1. CHANTIX [Suspect]
     Active Substance: VARENICLINE TARTRATE
     Indication: SMOKING CESSATION THERAPY
     Dosage: UNK
     Dates: start: 2007

REACTIONS (7)
  - Tobacco user [Unknown]
  - Lung disorder [Unknown]
  - Chronic obstructive pulmonary disease [Not Recovered/Not Resolved]
  - Cerebrovascular accident [Recovered/Resolved with Sequelae]
  - Colitis [Recovering/Resolving]
  - Arthritis [Not Recovered/Not Resolved]
  - Memory impairment [Unknown]

NARRATIVE: CASE EVENT DATE: 2012
